FAERS Safety Report 21044116 (Version 3)
Quarter: 2022Q3

REPORT INFORMATION
  Report Type: Report from Study
  Country: US (occurrence: US)
  Receive Date: 20220705
  Receipt Date: 20220831
  Transmission Date: 20221026
  Serious: Yes (Hospitalization, Other)
  Sender: FDA-Public Use
  Company Number: US-BAYER-2022A090774

PATIENT
  Age: 45 Year
  Sex: Male

DRUGS (1)
  1. STIVARGA [Suspect]
     Active Substance: REGORAFENIB
     Indication: Gastrointestinal stromal tumour
     Dosage: 160 MG, QD FOR 3 WEEKS ON, 1 WEEK OFF
     Route: 048
     Dates: start: 20220427, end: 202206

REACTIONS (6)
  - Small intestine operation [None]
  - Small intestinal perforation [Unknown]
  - Abdominal pain [None]
  - Gastrointestinal stromal tumour [None]
  - Bowel obstruction surgery [None]
  - Drug ineffective [Not Recovered/Not Resolved]
